FAERS Safety Report 7815734-6 (Version None)
Quarter: 2011Q4

REPORT INFORMATION
  Report Type: 
  Country: None (occurrence: None)
  Receive Date: 20111014
  Receipt Date: 20070607
  Transmission Date: 20120403
  Serious: Yes (Other)
  Sender: FDA-Public Use
  Company Number: GB-ABBOTT-06P-167-0339189-00

PATIENT
  Sex: Female

DRUGS (1)
  1. ISOFLURANE [Suspect]
     Indication: ACCIDENTAL EXPOSURE

REACTIONS (3)
  - PREMATURE SEPARATION OF PLACENTA [None]
  - PLACENTAL INSUFFICIENCY [None]
  - AMNIOTIC FLUID VOLUME DECREASED [None]
